FAERS Safety Report 16446658 (Version 1)
Quarter: 2019Q2

REPORT INFORMATION
  Report Type: Spontaneous
  Country: BE (occurrence: BE)
  Receive Date: 20190618
  Receipt Date: 20190618
  Transmission Date: 20190711
  Serious: Yes (Hospitalization)
  Sender: FDA-Public Use
  Company Number: BE-MYLANLABS-2019M1056081

PATIENT
  Age: 85 Year
  Sex: Female
  Weight: 71 kg

DRUGS (9)
  1. BELSAR                             /01635402/ [Suspect]
     Active Substance: OLMESARTAN MEDOXOMIL
     Indication: HYPERTENSION
     Dosage: 20 MILLIGRAM, QD
     Route: 048
     Dates: start: 20180410, end: 20180415
  2. BELSAR                             /01635402/ [Suspect]
     Active Substance: OLMESARTAN MEDOXOMIL
     Dosage: 40 MILLIGRAM, QD
     Route: 048
     Dates: start: 20180416, end: 20180423
  3. FORZATEN/HCT [Suspect]
     Active Substance: AMLODIPINE BESYLATE\HYDROCHLOROTHIAZIDE\OLMESARTAN MEDOXOMIL
     Indication: HYPERTENSION
     Dosage: 40/5/12.5 MG (40/5/12.5 MG, 1 IN 1 D)
     Route: 048
     Dates: start: 20180424, end: 20180528
  4. ESOMEPRAZOLE MAGNESIUM. [Concomitant]
     Active Substance: ESOMEPRAZOLE MAGNESIUM
     Dosage: 40 MILLIGRAM, QD
  5. LEVOTHYROXINE. [Concomitant]
     Active Substance: LEVOTHYROXINE
     Dosage: 87.5 MICROGRAM, QD
     Dates: start: 2000
  6. AMLODIPINE BESILATE [Concomitant]
     Active Substance: AMLODIPINE BESYLATE
     Dosage: 10 MILLIGRAM, QD
  7. BELSAR                             /01635402/ [Suspect]
     Active Substance: OLMESARTAN MEDOXOMIL
     Dosage: 40 MILLIGRAM, QD
     Route: 048
     Dates: start: 20180529, end: 20180828
  8. BISOPROLOL [Suspect]
     Active Substance: BISOPROLOL
     Indication: PRODUCT USED FOR UNKNOWN INDICATION
     Dosage: UNK
     Dates: start: 2013, end: 20180828
  9. ACETYLSALICYLIC ACID [Concomitant]
     Active Substance: ASPIRIN
     Indication: PROPHYLAXIS
     Dosage: 80 MILLIGRAM, QD
     Dates: start: 2013

REACTIONS (12)
  - Ischaemic hepatitis [Recovering/Resolving]
  - Drug level increased [Recovered/Resolved]
  - Dyspnoea [Unknown]
  - Acute kidney injury [Recovered/Resolved]
  - Anaemia [Unknown]
  - Hypovolaemia [Recovering/Resolving]
  - Fatigue [Recovering/Resolving]
  - Oedema peripheral [Unknown]
  - Blood urea increased [Unknown]
  - Renal impairment [Recovered/Resolved]
  - General physical health deterioration [Unknown]
  - Bradycardia [Unknown]

NARRATIVE: CASE EVENT DATE: 2018
